FAERS Safety Report 4402770-5 (Version None)
Quarter: 2004Q3

REPORT INFORMATION
  Report Type: 
  Country: None (occurrence: None)
  Receive Date: 20040720
  Receipt Date: 20040720
  Transmission Date: 20050211
  Serious: Yes (Life-Threatening)
  Sender: FDA-Public Use
  Company Number: None

PATIENT
  Age: 45 Year
  Sex: Female
  Weight: 73.0291 kg

DRUGS (4)
  1. REBIF [Suspect]
     Indication: MULTIPLE SCLEROSIS
     Dosage: 44 MCG/.5     3 TIMES SC
     Route: 058
     Dates: start: 20031226, end: 20040503
  2. NEURONTIN [Concomitant]
  3. IBUPROFEN [Concomitant]
  4. COPAXONE [Concomitant]

REACTIONS (9)
  - ALANINE AMINOTRANSFERASE INCREASED [None]
  - ASPARTATE AMINOTRANSFERASE INCREASED [None]
  - AUTOIMMUNE DISORDER [None]
  - CHOLESTASIS [None]
  - FATIGUE [None]
  - HEPATITIS [None]
  - JAUNDICE [None]
  - MALAISE [None]
  - NAUSEA [None]
